FAERS Safety Report 5679666-4 (Version None)
Quarter: 2008Q1

REPORT INFORMATION
  Report Type: 
  Country: None (occurrence: None)
  Receive Date: 20080321
  Receipt Date: 20080310
  Transmission Date: 20080703
  Serious: Yes (Other)
  Sender: FDA-Public Use
  Company Number: 2007BI010556

PATIENT
  Age: 19 Year
  Sex: Female

DRUGS (1)
  1. AVONEX [Suspect]
     Indication: RELAPSING-REMITTING MULTIPLE SCLEROSIS
     Dosage: 30 UG; QW; IM
     Route: 030
     Dates: start: 20070207, end: 20080111

REACTIONS (3)
  - DRUG ERUPTION [None]
  - HEPATIC ENZYME INCREASED [None]
  - URTICARIA [None]
